FAERS Safety Report 22031169 (Version 1)
Quarter: 2023Q1

REPORT INFORMATION
  Report Type: Spontaneous
  Country: TW (occurrence: TW)
  Receive Date: 20230223
  Receipt Date: 20230223
  Transmission Date: 20230417
  Serious: Yes (Hospitalization, Other)
  Sender: FDA-Public Use
  Company Number: TW-SUN PHARMACEUTICAL INDUSTRIES LTD-2023R1-380155

PATIENT
  Age: 41 Year
  Sex: Female

DRUGS (11)
  1. CLOZAPINE [Interacting]
     Active Substance: CLOZAPINE
     Indication: Schizophrenia
     Dosage: UNK (200-500 MG PER DAY)
     Route: 065
     Dates: start: 2007
  2. CLOZAPINE [Interacting]
     Active Substance: CLOZAPINE
     Dosage: 200 MILLIGRAM, DAILY
     Route: 065
  3. CLOZAPINE [Interacting]
     Active Substance: CLOZAPINE
     Dosage: UNK (25 TO 275MG DAILY)
     Route: 065
  4. CLOZAPINE [Interacting]
     Active Substance: CLOZAPINE
     Dosage: UNK (175MG)
     Route: 065
     Dates: start: 20220602
  5. CLOZAPINE [Interacting]
     Active Substance: CLOZAPINE
     Dosage: UNK (100MG)
     Route: 065
     Dates: start: 20220603
  6. VALPROIC ACID [Suspect]
     Active Substance: VALPROIC ACID
     Indication: Schizophrenia
     Dosage: UNK (1,000 MG)
     Route: 065
     Dates: start: 20220602
  7. VALPROIC ACID [Suspect]
     Active Substance: VALPROIC ACID
     Dosage: UNK (500 MG)
     Route: 065
     Dates: start: 20220606
  8. FLUVOXAMINE [Suspect]
     Active Substance: FLUVOXAMINE
     Indication: Drug level increased
     Dosage: 50 MILLIGRAM, DAILY
     Route: 065
     Dates: start: 20220510, end: 20220602
  9. PAXLOVID [Interacting]
     Active Substance: NIRMATRELVIR\RITONAVIR
     Indication: COVID-19
     Dosage: UNK (100 MG + 150 MG, EVERY 12 H)
     Route: 065
     Dates: start: 20220602, end: 20220607
  10. HALOPERIDOL [Concomitant]
     Active Substance: HALOPERIDOL
     Indication: Schizophrenia
     Dosage: UNK
     Route: 065
  11. PALIPERIDONE [Concomitant]
     Active Substance: PALIPERIDONE
     Indication: Schizophrenia
     Dosage: UNK (525MG EVERY 3 MONTHS)
     Route: 065

REACTIONS (3)
  - Neutropenia [Recovering/Resolving]
  - Leukopenia [Recovering/Resolving]
  - Drug interaction [Unknown]

NARRATIVE: CASE EVENT DATE: 20220605
